FAERS Safety Report 9706653 (Version 5)
Quarter: 2014Q1

REPORT INFORMATION
  Report Type: Report from Study
  Country: JP (occurrence: JP)
  Receive Date: 20131125
  Receipt Date: 20140317
  Transmission Date: 20141002
  Serious: Yes (Death)
  Sender: FDA-Public Use
  Company Number: JP-ROCHE-1307072

PATIENT
  Age: 70 Year
  Sex: Female
  Weight: 45 kg

DRUGS (10)
  1. BEVACIZUMAB [Suspect]
     Indication: LUNG ADENOCARCINOMA METASTATIC
     Route: 041
     Dates: start: 20120229, end: 20131017
  2. BEVACIZUMAB [Suspect]
     Indication: LUNG ADENOCARCINOMA METASTATIC
  3. WARFARIN POTASSIUM [Suspect]
     Indication: VENOUS THROMBOSIS LIMB
     Route: 048
     Dates: start: 20131018, end: 20131022
  4. WARFARIN POTASSIUM [Suspect]
     Indication: VENOUS THROMBOSIS LIMB
     Route: 048
     Dates: start: 20131023, end: 20131107
  5. PEMETREXED DISODIUM [Suspect]
     Indication: LUNG ADENOCARCINOMA METASTATIC
     Route: 041
     Dates: start: 20120229, end: 20131017
  6. CARBOPLATIN [Concomitant]
     Indication: LUNG ADENOCARCINOMA METASTATIC
     Dosage: DOSAGE IS UNCERTAIN.
     Route: 041
     Dates: start: 20120229
  7. DIOVAN [Concomitant]
     Route: 048
     Dates: start: 20121219
  8. LYRICA [Concomitant]
     Route: 048
     Dates: start: 20130801
  9. CYMBALTA [Concomitant]
     Route: 048
     Dates: start: 20130919, end: 20130925
  10. NIFEDIPINE CR [Concomitant]
     Route: 048
     Dates: start: 20120926

REACTIONS (4)
  - Pulmonary alveolar haemorrhage [Fatal]
  - Cardiac failure [Fatal]
  - Multi-organ failure [Fatal]
  - Venous thrombosis limb [Not Recovered/Not Resolved]
